FAERS Safety Report 4303713-5 (Version None)
Quarter: 2004Q1

REPORT INFORMATION
  Report Type: 
  Country: None (occurrence: None)
  Receive Date: 20040224
  Receipt Date: 20040224
  Transmission Date: 20041129
  Serious: Yes (Life-Threatening, Hospitalization, Disabling)
  Sender: FDA-Public Use
  Company Number: None

PATIENT
  Age: 2 Year
  Sex: Male
  Weight: 16 kg

DRUGS (3)
  1. DEPAKOTE [Suspect]
     Indication: CONVULSION
     Dosage: 125 MG BID ORAL
     Route: 048
     Dates: start: 20030905, end: 20030907
  2. RECTAL DIASTAT [Concomitant]
  3. KETOGENIC DIET [Concomitant]

REACTIONS (6)
  - ABASIA [None]
  - APHASIA [None]
  - CARNITINE DEFICIENCY [None]
  - CONDITION AGGRAVATED [None]
  - CONVULSION [None]
  - HYPERAMMONAEMIA [None]
